FAERS Safety Report 10100684 (Version 3)
Quarter: 2014Q2

REPORT INFORMATION
  Report Type: Spontaneous
  Country: BR (occurrence: BR)
  Receive Date: 20140423
  Receipt Date: 20140630
  Transmission Date: 20141212
  Serious: Yes (Hospitalization, Other)
  Sender: FDA-Public Use
  Company Number: PHHY2014BR049483

PATIENT
  Sex: Female

DRUGS (2)
  1. ACLASTA [Suspect]
     Indication: OSTEOPENIA
     Dosage: UNK UKN, UNK
     Route: 042
     Dates: start: 20140410
  2. TRILEPTAL [Suspect]
     Dosage: ABOUT 6 YEARS AGO

REACTIONS (14)
  - Head injury [Unknown]
  - Headache [Unknown]
  - Nausea [Unknown]
  - Dizziness [Not Recovered/Not Resolved]
  - Contusion [Unknown]
  - Oedema [Unknown]
  - Blood sodium decreased [Unknown]
  - Fall [Unknown]
  - Blood pressure decreased [Unknown]
  - Malaise [Not Recovered/Not Resolved]
  - Influenza [Unknown]
  - Myalgia [Not Recovered/Not Resolved]
  - Vomiting [Unknown]
  - Pyrexia [Unknown]
